FAERS Safety Report 20249290 (Version 1)
Quarter: 2021Q4

REPORT INFORMATION
  Report Type: Spontaneous
  Country: US (occurrence: None)
  Receive Date: 20211229
  Receipt Date: 20211229
  Transmission Date: 20220303
  Serious: No
  Sender: FDA-Public Use
  Company Number: None

PATIENT

DRUGS (6)
  1. GEMCITABINE [Suspect]
     Active Substance: GEMCITABINE
  2. OXALIPLATIN [Suspect]
     Active Substance: OXALIPLATIN
  3. ADRIAMYCIN [Suspect]
     Active Substance: DOXORUBICIN HYDROCHLORIDE
  4. BLEOMYCIN [Suspect]
     Active Substance: BLEOMYCIN SULFATE
  5. VINBLASTINE [Suspect]
     Active Substance: VINBLASTINE
  6. DACARBAZINE [Suspect]
     Active Substance: DACARBAZINE

REACTIONS (3)
  - Neuropathy peripheral [None]
  - Balance disorder [None]
  - Umbilical hernia [None]
